FAERS Safety Report 17292892 (Version 1)
Quarter: 2020Q1

REPORT INFORMATION
  Report Type: Spontaneous
  Country: US (occurrence: US)
  Receive Date: 20200102
  Receipt Date: 20200102
  Transmission Date: 20200409
  Serious: Yes (Other)
  Sender: FDA-Public Use
  Company Number: None

PATIENT
  Age: 49 Year
  Sex: Female

DRUGS (1)
  1. CYCLOSPORINE MODIFIED [Suspect]
     Active Substance: CYCLOSPORINE
     Indication: IMMUNE SYSTEM DISORDER
     Dates: start: 20191219, end: 20191220

REACTIONS (2)
  - Tremor [None]
  - Hallucination [None]

NARRATIVE: CASE EVENT DATE: 20191220
